FAERS Safety Report 25431265 (Version 2)
Quarter: 2025Q2

REPORT INFORMATION
  Report Type: Report from Study
  Country: US (occurrence: US)
  Receive Date: 20250613
  Receipt Date: 20250625
  Transmission Date: 20250717
  Serious: Yes (Other)
  Sender: MALLINCKRODT
  Company Number: US-MALLINCKRODT-MNK202501595

PATIENT
  Age: 64 Year
  Sex: Male

DRUGS (3)
  1. CORTICOTROPIN [Suspect]
     Active Substance: CORTICOTROPIN
     Indication: Keratitis
     Dosage: 80 UNITS
     Dates: start: 20240220
  2. CORTICOTROPIN [Suspect]
     Active Substance: CORTICOTROPIN
     Route: 058
  3. CORTICOTROPIN [Suspect]
     Active Substance: CORTICOTROPIN
     Dosage: 80 UNITS

REACTIONS (7)
  - Cataract [Unknown]
  - Vision blurred [Recovered/Resolved]
  - Superficial injury of eye [Recovered/Resolved]
  - Visual impairment [Recovered/Resolved]
  - Eye pruritus [Recovered/Resolved]
  - Adverse event [Unknown]
  - Product dose omission issue [Unknown]
